FAERS Safety Report 9895875 (Version 1)
Quarter: 2014Q1

REPORT INFORMATION
  Report Type: Spontaneous
  Country: US (occurrence: US)
  Receive Date: 20140213
  Receipt Date: 20140213
  Transmission Date: 20141002
  Serious: No
  Sender: FDA-Public Use
  Company Number: US-BRISTOL-MYERS SQUIBB COMPANY-17297706

PATIENT
  Age: 55 Year
  Sex: Female

DRUGS (7)
  1. ABATACEPT SUBQ INJECTION 125MG/ML [Suspect]
     Dosage: 1DF=125 MG/ML
     Route: 058
  2. METHOTREXATE [Suspect]
  3. FOLIC ACID [Concomitant]
  4. CELEBREX [Concomitant]
  5. SANCTURA [Concomitant]
  6. CALCIUM [Concomitant]
  7. MULTIVITAMIN [Concomitant]

REACTIONS (1)
  - Sinusitis [Unknown]
